FAERS Safety Report 7366251-1 (Version None)
Quarter: 2011Q1

REPORT INFORMATION
  Report Type: 
  Country: None (occurrence: None)
  Receive Date: 20110322
  Receipt Date: 20110308
  Transmission Date: 20110831
  Serious: Yes (Hospitalization, Other)
  Sender: FDA-Public Use
  Company Number: US-JNJFOC-20100500602

PATIENT
  Sex: Female
  Weight: 57.5 kg

DRUGS (5)
  1. REMICADE [Suspect]
     Dosage: TOTAL 13 DOSES
     Route: 042
     Dates: start: 20080310
  2. PREDNISONE [Concomitant]
  3. HUMIRA [Concomitant]
  4. REMICADE [Suspect]
     Indication: CROHN'S DISEASE
     Route: 042
     Dates: start: 20080310
  5. METRONIDAZOLE [Concomitant]

REACTIONS (4)
  - MASS [None]
  - DIARRHOEA [None]
  - POST PROCEDURAL INFECTION [None]
  - HAEMORRHAGE [None]
